FAERS Safety Report 23913221 (Version 1)
Quarter: 2024Q2

REPORT INFORMATION
  Report Type: Spontaneous
  Country: JP (occurrence: JP)
  Receive Date: 20240529
  Receipt Date: 20240529
  Transmission Date: 20240716
  Serious: Yes (Hospitalization, Other)
  Sender: FDA-Public Use
  Company Number: JP-BAYER-2024A061946

PATIENT
  Age: 67 Year
  Sex: Female

DRUGS (2)
  1. EYLEA [Suspect]
     Active Substance: AFLIBERCEPT
     Indication: Retinal vein occlusion
     Dosage: RIGHT EYE, 2MG, TOTAL 10 TIME, SOLUTION FOR INJECTION IN PRE-FILLED SYRINGE, 40MG/ML
     Dates: start: 20210706, end: 20231113
  2. UNSPECIFIED INGREDIENT [Concomitant]
     Active Substance: UNSPECIFIED INGREDIENT
     Indication: Collagen disorder
     Route: 048

REACTIONS (4)
  - Cardiac failure [Recovered/Resolved with Sequelae]
  - Cardiac ventricular thrombosis [Recovered/Resolved with Sequelae]
  - Myocardial infarction [Recovered/Resolved with Sequelae]
  - Oedema peripheral [Unknown]

NARRATIVE: CASE EVENT DATE: 20240201
